FAERS Safety Report 4615168-1 (Version None)
Quarter: 2005Q1

REPORT INFORMATION
  Report Type: 
  Country: None (occurrence: None)
  Receive Date: 20050322
  Receipt Date: 20050314
  Transmission Date: 20050727
  Serious: Yes (Death)
  Sender: FDA-Public Use
  Company Number: GB-GLAXOSMITHKLINE-B0374668A

PATIENT

DRUGS (1)
  1. ZYBAN [Suspect]
     Dosage: 50TAB SINGLE DOSE
     Route: 048

REACTIONS (2)
  - DEATH [None]
  - OVERDOSE [None]
